FAERS Safety Report 21493986 (Version 1)
Quarter: 2022Q4

REPORT INFORMATION
  Report Type: Spontaneous
  Country: None (occurrence: ES)
  Receive Date: 20221021
  Receipt Date: 20221021
  Transmission Date: 20230113
  Serious: Yes (Other)
  Sender: FDA-Public Use
  Company Number: ES-B.Braun Medical Inc.-2134093

PATIENT
  Age: 76 Year
  Sex: Male

DRUGS (4)
  1. METRONIDAZOLE [Suspect]
     Active Substance: METRONIDAZOLE
  2. CEFOTAXIME SODIUM [Concomitant]
     Active Substance: CEFOTAXIME SODIUM
  3. AZITHROMYCIN DIHYDRATE [Concomitant]
     Active Substance: AZITHROMYCIN DIHYDRATE
  4. CEFTRIAXONE [Concomitant]
     Active Substance: CEFTRIAXONE

REACTIONS (4)
  - Dysarthria [Recovered/Resolved]
  - Ataxia [Recovered/Resolved]
  - Nystagmus [Recovered/Resolved]
  - Cerebellar syndrome [Recovered/Resolved]
